FAERS Safety Report 7012426-0 (Version None)
Quarter: 2010Q3

REPORT INFORMATION
  Report Type: 
  Country: None (occurrence: None)
  Receive Date: 20100924
  Receipt Date: 20100922
  Transmission Date: 20110219
  Serious: Yes (Hospitalization)
  Sender: FDA-Public Use
  Company Number: FR-SANOFI-AVENTIS-2010SA056983

PATIENT
  Age: 68 Year
  Sex: Female

DRUGS (7)
  1. PREDNISOLONE [Suspect]
     Route: 048
     Dates: start: 20100817, end: 20100817
  2. NASACORT [Suspect]
     Route: 045
     Dates: start: 20100817, end: 20100817
  3. CLARITHROMYCIN [Suspect]
     Route: 048
     Dates: start: 20100817, end: 20100817
  4. AMOXICILLIN AND CLAVULANATE POTASSIUM [Suspect]
     Route: 048
     Dates: start: 20100810, end: 20100816
  5. FOSINOPRIL SODIUM AND HYDROCHLOROTHIAZIDE [Concomitant]
     Indication: PRODUCT USED FOR UNKNOWN INDICATION
  6. TANAKAN [Concomitant]
     Indication: PRODUCT USED FOR UNKNOWN INDICATION
  7. AZOPT [Concomitant]
     Indication: PRODUCT USED FOR UNKNOWN INDICATION

REACTIONS (3)
  - CHEST DISCOMFORT [None]
  - ERYTHEMA [None]
  - PALATAL OEDEMA [None]
